FAERS Safety Report 8573918-6 (Version None)
Quarter: 2012Q3

REPORT INFORMATION
  Report Type: 
  Country: None (occurrence: None)
  Receive Date: 20120806
  Receipt Date: 20120724
  Transmission Date: 20120928
  Serious: Yes (Other)
  Sender: FDA-Public Use
  Company Number: US-ENDO PHARMACEUTICALS INC.-ENDC20120044

PATIENT
  Sex: Male

DRUGS (2)
  1. ACETAMINOPHEN AND OXYCODONE HCL [Suspect]
     Indication: PRODUCT USED FOR UNKNOWN INDICATION
     Dosage: 7.5/325 MG
     Route: 048
  2. ACETAMINOPHEN AND OXYCODONE HCL [Suspect]
     Dosage: 3.25/162.5 MG
     Route: 048

REACTIONS (5)
  - WRONG TECHNIQUE IN DRUG USAGE PROCESS [None]
  - DYSPNOEA [None]
  - DRUG HYPERSENSITIVITY [None]
  - FINE MOTOR DELAY [None]
  - COGNITIVE DISORDER [None]
